FAERS Safety Report 24657393 (Version 1)
Quarter: 2024Q4

REPORT INFORMATION
  Report Type: Report from Study
  Country: CA (occurrence: CA)
  Receive Date: 20241125
  Receipt Date: 20241125
  Transmission Date: 20250114
  Serious: Yes (Death, Other)
  Sender: SANDOZ
  Company Number: CA-NOVPHSZ-PHHY2018CA167969

PATIENT
  Sex: Male

DRUGS (2)
  1. ERELZI [Suspect]
     Active Substance: ETANERCEPT-SZZS
     Indication: Rheumatoid arthritis
     Dosage: 50 MG, QW
     Route: 058
     Dates: start: 20181109
  2. NEUPOGEN [Concomitant]
     Active Substance: FILGRASTIM
     Indication: Product used for unknown indication
     Dosage: UNK, Q3W
     Route: 065

REACTIONS (6)
  - Death [Fatal]
  - Osteoporosis [Unknown]
  - Inflammation [Unknown]
  - Pain [Unknown]
  - Injection site erythema [Unknown]
  - Off label use [Unknown]
